FAERS Safety Report 8345099-5 (Version None)
Quarter: 2012Q2

REPORT INFORMATION
  Report Type: 
  Country: None (occurrence: None)
  Receive Date: 20120504
  Receipt Date: 20120424
  Transmission Date: 20120825
  Serious: Yes (Other)
  Sender: FDA-Public Use
  Company Number: US-2012-10481

PATIENT
  Age: 54 Year
  Sex: Female

DRUGS (6)
  1. SOLU-MEDROL [Concomitant]
  2. ETOPOSIDE [Suspect]
     Indication: MYELODYSPLASTIC SYNDROME
     Dosage: 60 MG/KG, DAILY DOSE, INTRAVENOUS
     Route: 042
  3. SIROLIMUS (RAPAMUNE) [Suspect]
     Indication: PROPHYLAXIS AGAINST GRAFT VERSUS HOST DISEASE
     Dosage: 12;4 MG MILLIGRAM(S) DAILY DOSE, ORAL
     Route: 048
  4. CYCLOPHOSPHAMIDE [Suspect]
     Indication: MYELODYSPLASTIC SYNDROME
     Dosage: 45 MG/KG, DAILY DOSE, INTRAVENOUS
     Route: 042
  5. BUSULFAN [Suspect]
     Dosage: 1 MG/KG, EVERY 6 HOURS, INTRAVENOUS
     Route: 042
  6. MYCOPHENOLATE MOFETIL [Suspect]
     Indication: PROPHYLAXIS AGAINST GRAFT VERSUS HOST DISEASE
     Dosage: 15 MG MILLIGRAM (S), UNK, INTRAVENOUS
     Route: 042

REACTIONS (4)
  - PORTAL VEIN THROMBOSIS [None]
  - ACUTE GRAFT VERSUS HOST DISEASE IN SKIN [None]
  - TOXICITY TO VARIOUS AGENTS [None]
  - GASTROINTESTINAL TOXICITY [None]
